FAERS Safety Report 4886197-8 (Version None)
Quarter: 2006Q1

REPORT INFORMATION
  Report Type: 
  Country: None (occurrence: None)
  Receive Date: 20060118
  Receipt Date: 20060105
  Transmission Date: 20060701
  Serious: Yes (Disabling)
  Sender: FDA-Public Use
  Company Number: 2006006640

PATIENT
  Age: 65 Year
  Sex: Female

DRUGS (3)
  1. BEXTRA [Suspect]
     Indication: ARTHRITIS
  2. BEXTRA [Suspect]
     Indication: MUSCULOSKELETAL PAIN
  3. VIOXX [Suspect]
     Indication: ILL-DEFINED DISORDER

REACTIONS (14)
  - ACTIVITIES OF DAILY LIVING IMPAIRED [None]
  - ANHEDONIA [None]
  - ASTHENIA [None]
  - CHEST PAIN [None]
  - DEPRESSION [None]
  - DERMATITIS ALLERGIC [None]
  - DIFFICULTY IN WALKING [None]
  - FATIGUE [None]
  - HAEMATOMA [None]
  - HYPOAESTHESIA [None]
  - MOBILITY DECREASED [None]
  - PAIN [None]
  - SLEEP DISORDER [None]
  - SWELLING [None]
